FAERS Safety Report 5281703-6 (Version None)
Quarter: 2007Q1

REPORT INFORMATION
  Report Type: 
  Country: None (occurrence: None)
  Receive Date: 20070330
  Receipt Date: 20070326
  Transmission Date: 20070707
  Serious: Yes (Hospitalization)
  Sender: FDA-Public Use
  Company Number: FR-AVENTIS-200711559EU

PATIENT
  Age: 80 Year
  Sex: Male

DRUGS (9)
  1. FLUDEX                             /00340101/ [Suspect]
     Indication: DRUG USE FOR UNKNOWN INDICATION
     Dosage: DOSE: UNK
     Route: 048
     Dates: end: 20070131
  2. ALLOPURINOL [Suspect]
     Indication: DRUG USE FOR UNKNOWN INDICATION
     Dosage: DOSE: UNK
     Route: 048
  3. KALEORID [Suspect]
     Indication: DRUG USE FOR UNKNOWN INDICATION
     Dosage: DOSE: UNK
     Route: 048
     Dates: end: 20070131
  4. PERMIXON                           /00833501/ [Suspect]
     Indication: DRUG USE FOR UNKNOWN INDICATION
     Dosage: DOSE: UNK
     Dates: end: 20070201
  5. OSMOGEL [Suspect]
     Indication: DRUG USE FOR UNKNOWN INDICATION
     Dosage: DOSE: UNK
     Route: 061
     Dates: end: 20070131
  6. PARIET [Suspect]
     Indication: DRUG USE FOR UNKNOWN INDICATION
     Dosage: DOSE: UNK
     Route: 048
  7. NEURONTIN [Concomitant]
     Dosage: DOSE: UNK
  8. DI-ACTANE [Concomitant]
     Dosage: DOSE: UNK
  9. ZAMUDOL [Concomitant]
     Dosage: DOSE: UNK

REACTIONS (1)
  - HAEMOLYTIC ANAEMIA [None]
